FAERS Safety Report 20740417 (Version 3)
Quarter: 2022Q3

REPORT INFORMATION
  Report Type: Spontaneous
  Country: CN (occurrence: CN)
  Receive Date: 20220422
  Receipt Date: 20220705
  Transmission Date: 20221027
  Serious: Yes (Hospitalization, Other)
  Sender: FDA-Public Use
  Company Number: CN-TAKEDA-2022TUS026591

PATIENT
  Age: 59 Year
  Sex: Male
  Weight: 59.5 kg

DRUGS (7)
  1. ENTYVIO [Suspect]
     Active Substance: VEDOLIZUMAB
     Indication: Colitis ulcerative
     Dosage: 300 MILLIGRAM
     Route: 041
     Dates: start: 20220302, end: 20220413
  2. ENTYVIO [Suspect]
     Active Substance: VEDOLIZUMAB
     Indication: Crohn^s disease
  3. ISONIAZID [Suspect]
     Active Substance: ISONIAZID
     Indication: Antibiotic prophylaxis
     Dosage: 0.3 GRAM, QD
     Route: 065
     Dates: start: 20220302, end: 20220413
  4. BACILLUS SUBTILIS [Concomitant]
     Active Substance: BACILLUS SUBTILIS
     Dosage: 500 MILLIGRAM, TID
     Route: 048
     Dates: start: 20220223, end: 20220413
  5. ILAPRAZOLE [Concomitant]
     Active Substance: ILAPRAZOLE
     Dosage: 10 MILLIGRAM, QD
     Route: 048
     Dates: start: 20220223, end: 20220413
  6. Iron polysaccharide complex [Concomitant]
     Indication: Haemoglobin decreased
     Dosage: 0.15 GRAM, QD
     Route: 048
     Dates: start: 20220223
  7. MESALAMINE [Concomitant]
     Active Substance: MESALAMINE
     Dosage: 1 GRAM, TID
     Route: 048
     Dates: start: 20220223, end: 20220413

REACTIONS (1)
  - Drug-induced liver injury [Recovering/Resolving]

NARRATIVE: CASE EVENT DATE: 20220405
